FAERS Safety Report 7514948-2 (Version None)
Quarter: 2011Q2

REPORT INFORMATION
  Report Type: 
  Country: None (occurrence: None)
  Receive Date: 20110601
  Receipt Date: 20110505
  Transmission Date: 20111010
  Serious: Yes (Hospitalization)
  Sender: FDA-Public Use
  Company Number: US-BAYER-201037998NA

PATIENT
  Age: 45 Year
  Sex: Female
  Weight: 99.773 kg

DRUGS (6)
  1. YASMIN [Suspect]
     Indication: PREMENSTRUAL SYNDROME
  2. BENADRYL [Concomitant]
     Indication: ARTHROPOD BITE
     Dosage: UNK
     Route: 048
     Dates: start: 20081010
  3. YASMIN [Suspect]
     Indication: ACNE
     Dosage: 1 DF, QD
     Dates: start: 20060101, end: 20080101
  4. YASMIN [Suspect]
     Dosage: 1 DF, QD
     Dates: start: 20060101, end: 20080101
  5. YAZ [Suspect]
     Dosage: 1 DF, QD
     Dates: start: 20060101, end: 20080101
  6. YASMIN [Suspect]

REACTIONS (6)
  - NAUSEA [None]
  - CHEST PAIN [None]
  - DYSPNOEA [None]
  - VOMITING [None]
  - ACUTE MYOCARDIAL INFARCTION [None]
  - MYOCARDIAL INFARCTION [None]
